FAERS Safety Report 17542285 (Version 8)
Quarter: 2025Q1

REPORT INFORMATION
  Report Type: Report from Study
  Country: US (occurrence: US)
  Receive Date: 20200313
  Receipt Date: 20250327
  Transmission Date: 20250409
  Serious: Yes (Hospitalization, Other)
  Sender: TAKEDA
  Company Number: US-SHIRE-US202009362

PATIENT
  Age: 38 Year
  Sex: Female
  Weight: 58 kg

DRUGS (8)
  1. ICATIBANT [Suspect]
     Active Substance: ICATIBANT ACETATE
     Indication: Immune system disorder
  2. ICATIBANT [Suspect]
     Active Substance: ICATIBANT ACETATE
  3. TAKHZYRO [Suspect]
     Active Substance: LANADELUMAB-FLYO
     Indication: Hereditary angioedema
     Dosage: 300 MILLIGRAM, Q2WEEKS
     Dates: start: 202401
  4. TAKHZYRO [Suspect]
     Active Substance: LANADELUMAB-FLYO
     Indication: Immune system disorder
  5. TAKHZYRO [Suspect]
     Active Substance: LANADELUMAB-FLYO
  6. HAEGARDA [Concomitant]
     Active Substance: HUMAN C1-ESTERASE INHIBITOR
     Indication: Product used for unknown indication
     Dosage: 5000 INTERNATIONAL UNIT, 2/WEEK
  7. RUCONEST [Concomitant]
     Active Substance: CONESTAT ALFA
  8. ICATIBANT ACETATE [Concomitant]
     Active Substance: ICATIBANT ACETATE

REACTIONS (9)
  - Kidney infection [Unknown]
  - Nephrolithiasis [Unknown]
  - Cystitis [Unknown]
  - Hereditary angioedema [Recovered/Resolved]
  - Migraine [Unknown]
  - Stress [Unknown]
  - Weight increased [Unknown]
  - Weight decreased [Unknown]
  - Expired product administered [Unknown]

NARRATIVE: CASE EVENT DATE: 20200309
